FAERS Safety Report 6260038-9 (Version None)
Quarter: 2009Q3

REPORT INFORMATION
  Report Type: 
  Country: None (occurrence: None)
  Receive Date: 20090708
  Receipt Date: 20090706
  Transmission Date: 20100115
  Serious: Yes (Death, Other)
  Sender: FDA-Public Use
  Company Number: DE-BAYER-200924913GPV

PATIENT
  Age: 40 Year
  Sex: Female

DRUGS (2)
  1. MIRENA [Suspect]
     Indication: CONTRACEPTION
     Route: 015
     Dates: start: 20070312, end: 20090122
  2. BIVIOL [Concomitant]
     Indication: CONTRACEPTION

REACTIONS (4)
  - ANXIETY [None]
  - COMPLETED SUICIDE [None]
  - DEPRESSED MOOD [None]
  - PANIC ATTACK [None]
